FAERS Safety Report 12249004 (Version 1)
Quarter: 2016Q2

REPORT INFORMATION
  Report Type: Spontaneous
  Country: US (occurrence: US)
  Receive Date: 20160408
  Receipt Date: 20160408
  Transmission Date: 20160815
  Serious: No
  Sender: FDA-Public Use
  Company Number: US-PFIZER INC-2016154582

PATIENT
  Sex: Female

DRUGS (2)
  1. TIKOSYN [Suspect]
     Active Substance: DOFETILIDE
     Dosage: UNK, 2X/DAY, 7 PM AND SHE TOOK THE SECOND DOSE AT 12:30
  2. TIKOSYN [Suspect]
     Active Substance: DOFETILIDE
     Dosage: UNK, 2X/DAY, EVERY 12 HOURS, 7 PM AND 7 AM

REACTIONS (2)
  - Confusional state [Unknown]
  - Inappropriate schedule of drug administration [Unknown]
